FAERS Safety Report 16898093 (Version 1)
Quarter: 2019Q4

REPORT INFORMATION
  Report Type: Spontaneous
  Country: US (occurrence: US)
  Receive Date: 20191009
  Receipt Date: 20191009
  Transmission Date: 20200122
  Serious: No
  Sender: FDA-Public Use
  Company Number: US-MYLANLABS-2019M1089343

PATIENT
  Sex: Female
  Weight: 56 kg

DRUGS (1)
  1. RIVASTIGMINE. [Suspect]
     Active Substance: RIVASTIGMINE
     Indication: DEMENTIA
     Dosage: 3 MILLIGRAM, QD
     Route: 062

REACTIONS (2)
  - Dry skin [Unknown]
  - Vasodilatation [Unknown]
